FAERS Safety Report 10522227 (Version 4)
Quarter: 2015Q1

REPORT INFORMATION
  Report Type: Report from Study
  Country: US (occurrence: US)
  Receive Date: 20141016
  Receipt Date: 20150119
  Transmission Date: 20150720
  Serious: Yes (Other)
  Sender: FDA-Public Use
  Company Number: US-SA-2014SA073717

PATIENT
  Age: 61 Year
  Sex: Male

DRUGS (2)
  1. AUBAGIO [Suspect]
     Active Substance: TERIFLUNOMIDE
     Indication: MULTIPLE SCLEROSIS
     Route: 048
     Dates: start: 20130918, end: 201412
  2. AMPYRA [Concomitant]
     Active Substance: DALFAMPRIDINE

REACTIONS (7)
  - Gait disturbance [Unknown]
  - Dry mouth [Unknown]
  - Coordination abnormal [Unknown]
  - Balance disorder [Unknown]
  - Muscular weakness [Recovered/Resolved]
  - Fall [Unknown]
  - Fatigue [Unknown]
